FAERS Safety Report 5288896-5 (Version None)
Quarter: 2007Q2

REPORT INFORMATION
  Report Type: 
  Country: None (occurrence: None)
  Receive Date: 20070405
  Receipt Date: 20070326
  Transmission Date: 20071010
  Serious: Yes (Other)
  Sender: FDA-Public Use
  Company Number: US-PFIZER INC-2007026126

PATIENT

DRUGS (1)
  1. GEODON [Suspect]
     Dosage: TEXT:UNKNOWN

REACTIONS (1)
  - HYPOAESTHESIA [None]
